FAERS Safety Report 14839076 (Version 3)
Quarter: 2018Q2

REPORT INFORMATION
  Report Type: Spontaneous
  Country: JP (occurrence: JP)
  Receive Date: 20180502
  Receipt Date: 20180611
  Transmission Date: 20180711
  Serious: Yes (Death, Other)
  Sender: FDA-Public Use
  Company Number: JP-ALLERGAN-1823972US

PATIENT
  Age: 82 Year
  Sex: Male

DRUGS (3)
  1. BOTOX [Suspect]
     Active Substance: ONABOTULINUMTOXINA
     Dosage: 240 UNITS, SINGLE
     Route: 030
     Dates: start: 20170614, end: 20170614
  2. BOTOX [Suspect]
     Active Substance: ONABOTULINUMTOXINA
     Indication: MUSCLE SPASMS
     Dosage: 350 UNITS, SINGLE
     Route: 030
     Dates: start: 20171220, end: 20171220
  3. BOTOX [Suspect]
     Active Substance: ONABOTULINUMTOXINA
     Dosage: 250 UNITS, SINGLE
     Route: 030
     Dates: start: 20170922, end: 20170922

REACTIONS (1)
  - Multiple organ dysfunction syndrome [Fatal]
